FAERS Safety Report 13495293 (Version 3)
Quarter: 2017Q2

REPORT INFORMATION
  Report Type: Spontaneous
  Country: US (occurrence: US)
  Receive Date: 20170428
  Receipt Date: 20170519
  Transmission Date: 20170830
  Serious: Yes (Hospitalization, Disabling, Other)
  Sender: FDA-Public Use
  Company Number: US-009507513-1704USA012664

PATIENT
  Age: 40 Year
  Sex: Male

DRUGS (20)
  1. METHOTREXATE. [Suspect]
     Active Substance: METHOTREXATE
     Dosage: UNK
     Route: 048
     Dates: start: 20160809, end: 2016
  2. VINCRISTINE [Suspect]
     Active Substance: VINCRISTINE
     Dosage: UNK
     Dates: start: 20170215
  3. RITUXIMAB [Concomitant]
     Active Substance: RITUXIMAB
     Dosage: UNK
     Dates: start: 20160809, end: 2016
  4. DEXAMETHASONE. [Suspect]
     Active Substance: DEXAMETHASONE
     Dosage: UNK
     Route: 048
     Dates: start: 20161021
  5. METHOTREXATE. [Suspect]
     Active Substance: METHOTREXATE
     Indication: CHEMOTHERAPY
     Dosage: COURSE 3
     Route: 048
     Dates: start: 20140515, end: 2014
  6. METHOTREXATE. [Suspect]
     Active Substance: METHOTREXATE
     Dosage: 15 MG, BIW
     Route: 037
  7. METHOTREXATE. [Suspect]
     Active Substance: METHOTREXATE
     Dosage: UNK
     Route: 048
     Dates: start: 20170215
  8. MERCAPTOPURINE. [Concomitant]
     Active Substance: MERCAPTOPURINE
     Dosage: UNK
     Dates: start: 20161021
  9. DEXAMETHASONE. [Suspect]
     Active Substance: DEXAMETHASONE
     Dosage: 6 MG/M2, (6MG TAB 2 TAB AM, 1 TAB PM) DAYS 1-5 MONTHLY, COURSE 5
     Route: 048
     Dates: start: 20141010, end: 201602
  10. METHOTREXATE. [Suspect]
     Active Substance: METHOTREXATE
     Dosage: UNK
     Route: 048
     Dates: start: 20161021
  11. VINCRISTINE [Suspect]
     Active Substance: VINCRISTINE
     Dosage: UNK
     Dates: start: 20160809
  12. METHOTREXATE. [Suspect]
     Active Substance: METHOTREXATE
     Dosage: COURSE 5: 20 MG/M^2 (2.5 MG TABS, 20 TABS), WEEKLY. (HELD ON DAYS OF IT CHEMO)
     Route: 048
     Dates: start: 20141010, end: 201508
  13. MERCAPTOPURINE. [Concomitant]
     Active Substance: MERCAPTOPURINE
     Indication: CHEMOTHERAPY
     Dosage: 75 MG/M2 (50 MG TAB, 3 TABS), QD
     Dates: start: 20141010, end: 201602
  14. DEXAMETHASONE. [Suspect]
     Active Substance: DEXAMETHASONE
     Dosage: UNK
     Route: 048
     Dates: start: 20160809, end: 2016
  15. DEXAMETHASONE. [Suspect]
     Active Substance: DEXAMETHASONE
     Dosage: UNK
     Route: 048
     Dates: start: 20160215
  16. METHOTREXATE. [Suspect]
     Active Substance: METHOTREXATE
     Indication: CHEMOTHERAPY
     Dosage: 15 MG, DAY 1 (AND DAY 29 ON THE FIRST 4 CYCLES OF MAINTENANCE) COURSE 5
     Route: 037
     Dates: start: 20141010
  17. VINCRISTINE [Suspect]
     Active Substance: VINCRISTINE
     Indication: CHEMOTHERAPY
     Dosage: 1.5 MG/M2, DAYS 1, 29, 57 COURSE 5
     Dates: start: 20141010
  18. RITUXIMAB [Concomitant]
     Active Substance: RITUXIMAB
     Dosage: UNK
     Dates: start: 20161021
  19. METHOTREXATE. [Suspect]
     Active Substance: METHOTREXATE
     Dosage: COURSE 4
     Route: 048
     Dates: start: 20140808, end: 2014
  20. RITUXIMAB [Concomitant]
     Active Substance: RITUXIMAB
     Dosage: UNK
     Dates: start: 20140115, end: 201608

REACTIONS (31)
  - Muscular weakness [Unknown]
  - Seizure [Unknown]
  - Sepsis [Unknown]
  - Urinary tract infection [Unknown]
  - Central venous catheterisation [Unknown]
  - Blast cells present [Unknown]
  - Blast cells present [Unknown]
  - Myelopathy [Unknown]
  - Clostridium difficile colitis [Unknown]
  - Abdominal pain [Unknown]
  - Fatigue [Unknown]
  - Acute lymphocytic leukaemia recurrent [Unknown]
  - Gait disturbance [Unknown]
  - Cytomegalovirus gastritis [Unknown]
  - Central nervous system lymphoma [Unknown]
  - Pyrexia [Unknown]
  - Cytomegalovirus oesophagitis [Unknown]
  - Paraplegia [Unknown]
  - Cytomegalovirus viraemia [Unknown]
  - Pyrexia [Unknown]
  - Hand-eye coordination impaired [Unknown]
  - Central nervous system leukaemia [Unknown]
  - Myelitis [Unknown]
  - Neuropathy peripheral [Unknown]
  - Weight decreased [Unknown]
  - Central nervous system leukaemia [Unknown]
  - Mental status changes [Unknown]
  - Deep vein thrombosis [Unknown]
  - Pain in extremity [Unknown]
  - Cytomegalovirus infection [Unknown]
  - Cytomegalovirus test positive [Unknown]

NARRATIVE: CASE EVENT DATE: 2014
